FAERS Safety Report 21434219 (Version 1)
Quarter: 2022Q4

REPORT INFORMATION
  Report Type: Spontaneous
  Country: US (occurrence: None)
  Receive Date: 20221010
  Receipt Date: 20221010
  Transmission Date: 20230113
  Serious: No
  Sender: FDA-Public Use
  Company Number: Unknown

PATIENT
  Age: 28 Year
  Sex: Female

DRUGS (3)
  1. ATORVASTATIN CALCIUM [Suspect]
     Active Substance: ATORVASTATIN CALCIUM
     Indication: Hypertriglyceridaemia
     Route: 065
  2. FENOFIBRATE [Suspect]
     Active Substance: FENOFIBRATE
     Indication: Hypertriglyceridaemia
     Route: 065
  3. ICOSAPENT [Suspect]
     Active Substance: ICOSAPENT
     Indication: Hypertriglyceridaemia
     Route: 065

REACTIONS (1)
  - Exposure during pregnancy [Unknown]
